FAERS Safety Report 4570188-0 (Version None)
Quarter: 2005Q1

REPORT INFORMATION
  Report Type: 
  Country: None (occurrence: None)
  Receive Date: 20050202
  Receipt Date: 20031208
  Transmission Date: 20050727
  Serious: Yes (Death)
  Sender: FDA-Public Use
  Company Number: F01200301431

PATIENT
  Age: 74 Year
  Sex: Male

DRUGS (5)
  1. CLOPIDOGREL BISULFATE [Suspect]
     Indication: MYOCARDIAL INFARCTION
     Dosage: LOADING DOSE OF 300 MG FOLLOWED BY 75 MG DAILY
     Route: 048
     Dates: start: 20031202, end: 20031202
  2. ACETYLSALICYLIC ACID [Concomitant]
  3. CAPTOPRIL [Concomitant]
  4. STREPTOKINASE [Concomitant]
  5. HEPARIN UNFRACTIONATED (HEPARIN) [Concomitant]

REACTIONS (6)
  - BRAIN OEDEMA [None]
  - CEREBRAL HAEMORRHAGE [None]
  - GASTRIC ULCER [None]
  - GASTROINTESTINAL HAEMORRHAGE [None]
  - HAEMORRHAGIC STROKE [None]
  - SUBARACHNOID HAEMORRHAGE [None]
